FAERS Safety Report 4812188-9 (Version None)
Quarter: 2005Q4

REPORT INFORMATION
  Report Type: 
  Country: None (occurrence: None)
  Receive Date: 20051028
  Receipt Date: 20040913
  Transmission Date: 20060501
  Serious: No
  Sender: FDA-Public Use
  Company Number: US-GLAXOSMITHKLINE-A0525415A

PATIENT
  Age: 80 Year
  Sex: Female

DRUGS (5)
  1. ADVAIR DISKUS 100/50 [Suspect]
     Indication: ASTHMA
     Dosage: 1PUFF TWICE PER DAY
     Route: 055
     Dates: start: 20040910, end: 20040901
  2. FLOVENT [Suspect]
     Indication: ASTHMA
     Route: 055
     Dates: start: 20040101
  3. SINGULAIR [Concomitant]
  4. ALPHAGAN [Concomitant]
  5. XALATAN [Concomitant]

REACTIONS (4)
  - FLUSHING [None]
  - ILL-DEFINED DISORDER [None]
  - TREMOR [None]
  - VOMITING [None]
